FAERS Safety Report 4891182-6 (Version None)
Quarter: 2006Q1

REPORT INFORMATION
  Report Type: 
  Country: None (occurrence: None)
  Receive Date: 20060125
  Receipt Date: 20060120
  Transmission Date: 20060701
  Serious: Yes (Hospitalization)
  Sender: FDA-Public Use
  Company Number: BR-GLAXOSMITHKLINE-A0590554A

PATIENT
  Age: 67 Year
  Sex: Female
  Weight: 46 kg

DRUGS (3)
  1. VALTREX [Suspect]
     Indication: STOMATITIS
     Dosage: 500MG PER DAY
     Route: 048
     Dates: start: 20060116, end: 20060117
  2. ISONIAZID [Concomitant]
     Dates: start: 20060116
  3. NISTATIN [Concomitant]
     Dates: start: 20060116

REACTIONS (6)
  - BURNING SENSATION [None]
  - DRUG TOXICITY [None]
  - ERYTHEMA [None]
  - FLUSHING [None]
  - PYREXIA [None]
  - RASH VESICULAR [None]
